FAERS Safety Report 7859795-7 (Version None)
Quarter: 2011Q4

REPORT INFORMATION
  Report Type: 
  Country: None (occurrence: None)
  Receive Date: 20111027
  Receipt Date: 20111019
  Transmission Date: 20120403
  Serious: Yes (Hospitalization, Other)
  Sender: FDA-Public Use
  Company Number: JP-PFIZER INC-2011235567

PATIENT
  Age: 71 Year
  Sex: Female

DRUGS (10)
  1. ANPLAG [Concomitant]
     Indication: ARTERIOSCLEROSIS OBLITERANS
     Dosage: 100 MG, 3X/DAY
     Route: 048
     Dates: start: 20110719
  2. PREGABALIN [Suspect]
     Dosage: UNK
     Route: 048
     Dates: start: 20110825, end: 20110825
  3. CODEINE PHOSPHATE [Suspect]
     Dosage: UNK
     Route: 048
     Dates: start: 20110825, end: 20110826
  4. CODEINE PHOSPHATE [Suspect]
     Dosage: 20 MG, 2X/DAY
     Route: 048
     Dates: start: 20110720, end: 20110815
  5. CEFAZOLIN SODIUM [Suspect]
     Indication: INFECTION PROPHYLAXIS
     Dosage: 1 G, 2X/DAY
     Route: 041
     Dates: start: 20110726, end: 20110729
  6. ALPROSTADIL [Concomitant]
     Indication: ARTERIOSCLEROSIS OBLITERANS
     Dosage: 5 MCG, 1 IN 1 D
     Route: 041
     Dates: start: 20110726, end: 20110809
  7. CELECOXIB [Suspect]
     Indication: PAIN
     Dosage: 100 MG, 2X/DAY
     Route: 048
     Dates: start: 20110721, end: 20110801
  8. CODEINE PHOSPHATE [Suspect]
     Indication: PAIN
     Dosage: 20 MG, AS NEEDED
     Route: 048
     Dates: start: 20110719, end: 20110815
  9. LANSOPRAZOLE [Suspect]
     Indication: GASTRIC ULCER
     Dosage: 15 MG, 1X/DAY
     Route: 048
     Dates: start: 20110720, end: 20110801
  10. PREGABALIN [Suspect]
     Indication: PAIN
     Dosage: 75 MG, 1X/DAY
     Route: 048
     Dates: start: 20110720, end: 20110815

REACTIONS (1)
  - ERYTHEMA MULTIFORME [None]
